FAERS Safety Report 7347986-3 (Version None)
Quarter: 2011Q1

REPORT INFORMATION
  Report Type: 
  Country: None (occurrence: None)
  Receive Date: 20110302
  Receipt Date: 20110222
  Transmission Date: 20110831
  Serious: Yes (Other)
  Sender: FDA-Public Use
  Company Number: 2011SP008350

PATIENT
  Sex: Female

DRUGS (1)
  1. CERAZETTE (DESOGESTREL / 00754001/ ) [Suspect]
     Indication: CONTRACEPTION
     Dosage: 75 MCG, QD,

REACTIONS (1)
  - ARRHYTHMIA [None]
